FAERS Safety Report 4891811-7 (Version None)
Quarter: 2006Q1

REPORT INFORMATION
  Report Type: 
  Country: None (occurrence: None)
  Receive Date: 20060123
  Receipt Date: 20060104
  Transmission Date: 20060701
  Serious: Yes (Hospitalization)
  Sender: FDA-Public Use
  Company Number: DE_050917063

PATIENT
  Age: 9 Year
  Sex: Male

DRUGS (2)
  1. STRATTERA [Suspect]
     Indication: ATTENTION DEFICIT/HYPERACTIVITY DISORDER
     Dosage: 18 MG, DAILY (1/D); ORAL; 40 MG, DAILY (1/D), ORAL
     Route: 048
     Dates: start: 20050801, end: 20050801
  2. STRATTERA [Suspect]
     Indication: ATTENTION DEFICIT/HYPERACTIVITY DISORDER
     Dosage: 18 MG, DAILY (1/D); ORAL; 40 MG, DAILY (1/D), ORAL
     Route: 048
     Dates: start: 20050801, end: 20050826

REACTIONS (2)
  - DYSKINESIA [None]
  - PRESCRIBED OVERDOSE [None]
